FAERS Safety Report 6413916-1 (Version None)
Quarter: 2009Q4

REPORT INFORMATION
  Report Type: 
  Country: None (occurrence: None)
  Receive Date: 20091026
  Receipt Date: 20091016
  Transmission Date: 20100525
  Serious: Yes (Other)
  Sender: FDA-Public Use
  Company Number: US-JNJFOC-20091005919

PATIENT
  Sex: Female

DRUGS (2)
  1. DOXORUBICIN HCL [Suspect]
     Dosage: 2ND INFUSION
     Route: 042
  2. DOXORUBICIN HCL [Suspect]
     Indication: OVARIAN CANCER
     Dosage: 1ST INFUSION
     Route: 042

REACTIONS (4)
  - BLISTER [None]
  - OEDEMA PERIPHERAL [None]
  - RASH [None]
  - SKIN CHAPPED [None]
